FAERS Safety Report 9020897 (Version 1)
Quarter: 2013Q1

REPORT INFORMATION
  Report Type: Spontaneous
  Country: US (occurrence: US)
  Receive Date: 20130119
  Receipt Date: 20130119
  Transmission Date: 20140127
  Serious: No
  Sender: FDA-Public Use
  Company Number: US-ALLERGAN-1205432US

PATIENT
  Age: 79 Year
  Sex: Male

DRUGS (2)
  1. BOTOX? [Suspect]
     Indication: MUSCLE TWITCHING
     Dosage: 12.5 UNITS, SINGLE
     Dates: start: 20120319, end: 20120319
  2. CELEBREX [Concomitant]
     Indication: PRODUCT USED FOR UNKNOWN INDICATION
     Dosage: 200 MG, QD

REACTIONS (10)
  - Influenza like illness [Not Recovered/Not Resolved]
  - Generalised erythema [Not Recovered/Not Resolved]
  - Rhinorrhoea [Not Recovered/Not Resolved]
  - Cough [Not Recovered/Not Resolved]
  - Burning sensation [Not Recovered/Not Resolved]
  - Rash [Not Recovered/Not Resolved]
  - Dizziness [Not Recovered/Not Resolved]
  - Dry eye [Not Recovered/Not Resolved]
  - Diplopia [Not Recovered/Not Resolved]
  - Pruritus generalised [Not Recovered/Not Resolved]
